FAERS Safety Report 19239093 (Version 1)
Quarter: 2021Q2

REPORT INFORMATION
  Report Type: Report from Study
  Country: US (occurrence: US)
  Receive Date: 20210510
  Receipt Date: 20210510
  Transmission Date: 20210717
  Serious: Yes (Other)
  Sender: FDA-Public Use
  Company Number: US-JNJFOC-20210506149

PATIENT
  Age: 56 Year
  Sex: Male

DRUGS (1)
  1. TOPIRAMATE. [Suspect]
     Active Substance: TOPIRAMATE
     Indication: PRODUCT USED FOR UNKNOWN INDICATION
     Route: 048

REACTIONS (4)
  - Atrioventricular block [Recovered/Resolved]
  - Device related infection [Recovered/Resolved]
  - Weight increased [Not Recovered/Not Resolved]
  - Cognitive disorder [Recovered/Resolved]
